FAERS Safety Report 6350603-2 (Version None)
Quarter: 2009Q3

REPORT INFORMATION
  Report Type: 
  Country: None (occurrence: None)
  Receive Date: 20090911
  Receipt Date: 20090622
  Transmission Date: 20100115
  Serious: No
  Sender: FDA-Public Use
  Company Number: US-ABBOTT-07P-163-0367357-00

PATIENT
  Sex: Male
  Weight: 69.916 kg

DRUGS (3)
  1. HUMIRA [Suspect]
     Indication: RHEUMATOID ARTHRITIS
     Route: 058
     Dates: start: 20070401
  2. HUMIRA [Suspect]
     Indication: GOUT
     Route: 058
     Dates: start: 20070201, end: 20070401
  3. BLOOD PRESSURE MEDICATIONS [Concomitant]
     Indication: BLOOD PRESSURE

REACTIONS (3)
  - INCORRECT DOSE ADMINISTERED [None]
  - INJECTION SITE HAEMATOMA [None]
  - INJECTION SITE PAIN [None]
